FAERS Safety Report 6630947-7 (Version None)
Quarter: 2010Q1

REPORT INFORMATION
  Report Type: 
  Country: None (occurrence: None)
  Receive Date: 20100311
  Receipt Date: 20100225
  Transmission Date: 20100710
  Serious: No
  Sender: FDA-Public Use
  Company Number: US-BIOGENIDEC-2009BI039913

PATIENT
  Age: 53 Year
  Sex: Female

DRUGS (3)
  1. TYSABRI [Suspect]
     Indication: MULTIPLE SCLEROSIS
     Route: 042
     Dates: start: 20080903
  2. COPAXONE [Concomitant]
  3. HERBAL SUPPLEMENTS [Concomitant]

REACTIONS (2)
  - HEADACHE [None]
  - MULTIPLE ALLERGIES [None]
